FAERS Safety Report 20901094 (Version 3)
Quarter: 2022Q4

REPORT INFORMATION
  Report Type: Report from Study
  Country: CA (occurrence: CA)
  Receive Date: 20220601
  Receipt Date: 20221227
  Transmission Date: 20230112
  Serious: Yes (Other)
  Sender: FDA-Public Use
  Company Number: CA-NOVARTISPH-NVSC2022CA122149

PATIENT
  Age: 83 Year
  Sex: Male
  Weight: 61 kg

DRUGS (4)
  1. PIRFENIDONE [Suspect]
     Active Substance: PIRFENIDONE
     Indication: Idiopathic pulmonary fibrosis
     Dosage: UNK
     Route: 048
  2. PIRFENIDONE [Suspect]
     Active Substance: PIRFENIDONE
     Dosage: UNK, TID
     Route: 048
  3. PIRFENIDONE [Suspect]
     Active Substance: PIRFENIDONE
     Dosage: 2403 MG, QD
     Route: 048
  4. NINTEDANIB [Suspect]
     Active Substance: NINTEDANIB
     Indication: Product used for unknown indication
     Dosage: UNK (STOP DATE: FEB)
     Route: 065

REACTIONS (8)
  - Pulmonary septal thickening [Unknown]
  - Bronchiectasis [Unknown]
  - Pulmonary congestion [Unknown]
  - Gastrointestinal disorder [Unknown]
  - Dyspnoea exertional [Unknown]
  - Productive cough [Unknown]
  - Cough [Unknown]
  - Drug intolerance [Unknown]

NARRATIVE: CASE EVENT DATE: 20180515
